FAERS Safety Report 5793806-8 (Version None)
Quarter: 2008Q2

REPORT INFORMATION
  Report Type: 
  Country: None (occurrence: None)
  Receive Date: 20080627
  Receipt Date: 20080626
  Transmission Date: 20081010
  Serious: Yes (Hospitalization)
  Sender: FDA-Public Use
  Company Number: PHHO2005AU08731

PATIENT
  Sex: Male
  Weight: 71.4 kg

DRUGS (4)
  1. ACLASTA/ZOLEDRONATE T29581+A+SOLINJ+OS [Suspect]
     Indication: OSTEOPOROSIS
     Dosage: 5MG
     Dates: start: 20050523
  2. AMIODARONE HCL [Suspect]
  3. PREDNISONE [Concomitant]
     Dates: start: 20050211
  4. BACTRIM [Concomitant]
     Dates: start: 20050101, end: 20050517

REACTIONS (7)
  - CARDIOMYOPATHY [None]
  - CONCOMITANT DISEASE PROGRESSION [None]
  - DYSPNOEA [None]
  - INTERVERTEBRAL DISCITIS [None]
  - OSTEOMYELITIS [None]
  - PULMONARY OEDEMA [None]
  - STAPHYLOCOCCAL SEPSIS [None]
